FAERS Safety Report 4693969-1 (Version None)
Quarter: 2005Q2

REPORT INFORMATION
  Report Type: 
  Country: None (occurrence: None)
  Receive Date: 20050617
  Receipt Date: 20050609
  Transmission Date: 20051028
  Serious: Yes (Death)
  Sender: FDA-Public Use
  Company Number: AU-MERCK-0506AUS00144

PATIENT
  Age: 10 Year
  Sex: Female
  Weight: 50 kg

DRUGS (1)
  1. VIOXX [Suspect]
     Indication: ARTHRALGIA
     Route: 048

REACTIONS (6)
  - ASTHMA [None]
  - FALL [None]
  - INFLAMMATION [None]
  - RESPIRATORY DISORDER [None]
  - SWELLING FACE [None]
  - SWOLLEN TONGUE [None]
